FAERS Safety Report 8905972 (Version 2)
Quarter: 2012Q4

REPORT INFORMATION
  Report Type: 
  Country: US (occurrence: US)
  Receive Date: 20121109
  Receipt Date: 20121212
  Transmission Date: 20130627
  Serious: Yes (Life-Threatening, Other)
  Sender: FDA-Public Use
  Company Number: US-GLAXOSMITHKLINE-A0999584A

PATIENT
  Age: 55 Year
  Sex: Female

DRUGS (2)
  1. MEPRON [Suspect]
     Indication: BABESIOSIS
     Route: 048
     Dates: start: 20121017, end: 20121024
  2. AZITHROMYCIN [Concomitant]

REACTIONS (1)
  - Neutropenia [Recovered/Resolved]
